FAERS Safety Report 7359408-7 (Version None)
Quarter: 2011Q1

REPORT INFORMATION
  Report Type: 
  Country: None (occurrence: None)
  Receive Date: 20110317
  Receipt Date: 20091120
  Transmission Date: 20110831
  Serious: No
  Sender: FDA-Public Use
  Company Number: US-PFIZER INC-2009288890

PATIENT
  Sex: Female

DRUGS (2)
  1. AMLODIPINE BESYLATE [Suspect]
  2. ALLOPURINOL [Suspect]

REACTIONS (1)
  - RASH [None]
